FAERS Safety Report 9522046 (Version 1)
Quarter: 2013Q3

REPORT INFORMATION
  Report Type: Spontaneous
  Country: CN (occurrence: CN)
  Receive Date: 20130913
  Receipt Date: 20130913
  Transmission Date: 20140515
  Serious: Yes (Other)
  Sender: FDA-Public Use
  Company Number: CN-009507513-1309CHN003903

PATIENT
  Age: 75 Year
  Sex: Male

DRUGS (1)
  1. TIENAM [Suspect]
     Indication: DRUG THERAPY
     Dosage: 0.5 G, QD, I.V., GTT
     Route: 042
     Dates: start: 20120315, end: 20120328

REACTIONS (1)
  - Dermatitis allergic [Recovering/Resolving]
